FAERS Safety Report 16572740 (Version 1)
Quarter: 2019Q3

REPORT INFORMATION
  Report Type: Spontaneous
  Country: US (occurrence: US)
  Receive Date: 20190715
  Receipt Date: 20190715
  Transmission Date: 20191004
  Serious: No
  Sender: FDA-Public Use
  Company Number: US-SA-2019SA188544

PATIENT
  Age: 42 Year
  Sex: Female

DRUGS (1)
  1. DUPIXENT [Suspect]
     Active Substance: DUPILUMAB
     Indication: ASTHMA
     Dosage: 300 MG, QOW
     Route: 058
     Dates: start: 20190614, end: 20190709

REACTIONS (6)
  - Erythema [Unknown]
  - Cough [Unknown]
  - Dyspnoea [Unknown]
  - Pruritus [Unknown]
  - Wheezing [Unknown]
  - Injection site reaction [Unknown]

NARRATIVE: CASE EVENT DATE: 20190614
